FAERS Safety Report 4531238-0 (Version None)
Quarter: 2004Q4

REPORT INFORMATION
  Report Type: 
  Country: None (occurrence: None)
  Receive Date: 20041126
  Receipt Date: 20040917
  Transmission Date: 20050328
  Serious: Yes (Other)
  Sender: FDA-Public Use
  Company Number: HQWYE122320SEP04

PATIENT
  Age: 19 Year
  Sex: Female
  Weight: 72.64 kg

DRUGS (2)
  1. TRIPHASIL-28 [Suspect]
     Indication: CONTRACEPTION
     Dosage: 1 TABLET 1X PER 1 DAY, ORAL
     Route: 048
     Dates: start: 20040401, end: 20040730
  2. TRIPHASIL-28 [Suspect]
     Indication: CONTRACEPTION
     Dosage: 1 TABLET 1X PER 1 DAY, ORAL
     Route: 048
     Dates: start: 20040820

REACTIONS (2)
  - DRUG INEFFECTIVE [None]
  - UNINTENDED PREGNANCY [None]
